FAERS Safety Report 5806903-5 (Version None)
Quarter: 2008Q3

REPORT INFORMATION
  Report Type: 
  Country: None (occurrence: None)
  Receive Date: 20080711
  Receipt Date: 20080629
  Transmission Date: 20090109
  Serious: Yes (Death, Other)
  Sender: FDA-Public Use
  Company Number: HQWYE498806JUN03

PATIENT
  Age: 2 Year
  Sex: Male

DRUGS (1)
  1. MYLOTARG [Suspect]
     Indication: ACUTE MYELOID LEUKAEMIA
     Route: 065

REACTIONS (4)
  - BONE MARROW FAILURE [None]
  - CHILLS [None]
  - PYREXIA [None]
  - VENOOCCLUSIVE LIVER DISEASE [None]
